FAERS Safety Report 19418470 (Version 2)
Quarter: 2022Q1

REPORT INFORMATION
  Report Type: Spontaneous
  Country: US (occurrence: US)
  Receive Date: 20210615
  Receipt Date: 20220314
  Transmission Date: 20220423
  Serious: No
  Sender: FDA-Public Use
  Company Number: US-GLOBAL BLOOD THERAPEUTICS INC-US-GBT-21-01369

PATIENT
  Sex: Female

DRUGS (4)
  1. OXBRYTA [Suspect]
     Active Substance: VOXELOTOR
     Indication: Sickle cell disease
     Route: 048
     Dates: start: 20210417, end: 2021
  2. OXBRYTA [Suspect]
     Active Substance: VOXELOTOR
     Route: 048
     Dates: start: 2021
  3. MS CONTIN [Concomitant]
     Active Substance: MORPHINE SULFATE
     Indication: Pain
  4. HYDROCODONE [Concomitant]
     Active Substance: HYDROCODONE
     Indication: Pain
     Dosage: NOT PROVIDED

REACTIONS (4)
  - Pruritus [Not Recovered/Not Resolved]
  - Rash [Unknown]
  - Urticaria [Recovered/Resolved]
  - Diarrhoea [Recovered/Resolved]

NARRATIVE: CASE EVENT DATE: 20210101
